FAERS Safety Report 5792949-2 (Version None)
Quarter: 2008Q2

REPORT INFORMATION
  Report Type: 
  Country: None (occurrence: None)
  Receive Date: 20080627
  Receipt Date: 20080619
  Transmission Date: 20081010
  Serious: Yes (Other)
  Sender: FDA-Public Use
  Company Number: US-AMGEN-US288381

PATIENT
  Sex: Female

DRUGS (3)
  1. ENBREL [Suspect]
     Indication: RHEUMATOID ARTHRITIS
     Route: 058
     Dates: start: 20021121, end: 20060401
  2. ENBREL [Suspect]
     Dates: start: 20010831
  3. ENBREL [Suspect]
     Dates: start: 20010601

REACTIONS (1)
  - CROHN'S DISEASE [None]
